FAERS Safety Report 8552019-7 (Version None)
Quarter: 2012Q3

REPORT INFORMATION
  Report Type: 
  Country: None (occurrence: None)
  Receive Date: 20120730
  Receipt Date: 20120716
  Transmission Date: 20120928
  Serious: Yes (Disabling)
  Sender: FDA-Public Use
  Company Number: CHPA2012US015678

PATIENT
  Sex: Male

DRUGS (1)
  1. EXCEDRIN EXTRA STRENGTH TABLETS [Suspect]
     Indication: PAIN
     Dosage: UNK, UNK
     Route: 048

REACTIONS (3)
  - ARTHROPATHY [None]
  - MUSCULOSKELETAL STIFFNESS [None]
  - DISEASE RECURRENCE [None]
